FAERS Safety Report 5913749-6 (Version None)
Quarter: 2008Q4

REPORT INFORMATION
  Report Type: 
  Country: None (occurrence: None)
  Receive Date: 20081007
  Receipt Date: 20080924
  Transmission Date: 20090506
  Serious: Yes (Hospitalization)
  Sender: FDA-Public Use
  Company Number: 238825J08USA

PATIENT
  Age: 58 Year
  Sex: Female
  Weight: 107 kg

DRUGS (8)
  1. REBIF [Suspect]
     Indication: MULTIPLE SCLEROSIS
     Dosage: SEE IMAGE
     Route: 058
     Dates: start: 20041211, end: 20080816
  2. REBIF [Suspect]
     Indication: MULTIPLE SCLEROSIS
     Dosage: SEE IMAGE
     Route: 058
     Dates: start: 20080909, end: 20080916
  3. REBIF [Suspect]
     Indication: MULTIPLE SCLEROSIS
     Dosage: SEE IMAGE
     Route: 058
     Dates: start: 20080916
  4. BACLOFEN(BACLFOEN) [Concomitant]
  5. ATENOLOL [Concomitant]
  6. PROZAC [Concomitant]
  7. MORPHINE [Concomitant]
  8. BUSIPRONE(BUSIPRONE) [Concomitant]

REACTIONS (7)
  - BACK PAIN [None]
  - BALANCE DISORDER [None]
  - BENIGN INTRACRANIAL HYPERTENSION [None]
  - DYSARTHRIA [None]
  - HEADACHE [None]
  - OPTIC NEURITIS [None]
  - RENAL CANCER [None]
